FAERS Safety Report 18490341 (Version 2)
Quarter: 2020Q4

REPORT INFORMATION
  Report Type: Report from Study
  Country: US (occurrence: US)
  Receive Date: 20201111
  Receipt Date: 20201214
  Transmission Date: 20210114
  Serious: No
  Sender: FDA-Public Use
  Company Number: NVSC2020US298688

PATIENT
  Sex: Female

DRUGS (2)
  1. PIQRAY [Suspect]
     Active Substance: ALPELISIB
     Indication: PRODUCT USED FOR UNKNOWN INDICATION
     Dosage: UNK
     Route: 048
  2. PIQRAY [Suspect]
     Active Substance: ALPELISIB
     Dosage: 150 MG, QD
     Route: 048

REACTIONS (10)
  - Retching [Unknown]
  - Urine output decreased [Unknown]
  - Dehydration [Unknown]
  - Faeces soft [Unknown]
  - Decreased appetite [Unknown]
  - Eating disorder [Unknown]
  - Parosmia [Unknown]
  - Weight decreased [Unknown]
  - Palpitations [Unknown]
  - Dry skin [Unknown]
